FAERS Safety Report 7883339-7 (Version None)
Quarter: 2011Q4

REPORT INFORMATION
  Report Type: 
  Country: None (occurrence: None)
  Receive Date: 20111102
  Receipt Date: 20111018
  Transmission Date: 20120403
  Serious: Yes (Hospitalization, Other)
  Sender: FDA-Public Use
  Company Number: US-ELI_LILLY_AND_COMPANY-US201102004332

PATIENT
  Sex: Female

DRUGS (13)
  1. FORTEO [Suspect]
     Indication: OSTEOPOROSIS
     Dosage: 20 UG, QD
     Route: 058
     Dates: start: 20091230
  2. ACTONEL [Concomitant]
  3. SEROQUEL [Concomitant]
  4. METRONIDAZOLE [Concomitant]
  5. XANAX [Concomitant]
  6. REMICADE [Concomitant]
     Indication: CROHN'S DISEASE
  7. VITAMIN D [Concomitant]
  8. PREDNISONE [Concomitant]
  9. FLUOXETINE HCL [Concomitant]
  10. TRAMADOL HCL [Concomitant]
  11. FORTEO [Suspect]
     Dosage: 20 UG, QD
     Route: 058
  12. HYDROCODONE BITARTRATE [Concomitant]
  13. FORTEO [Suspect]
     Dosage: 20 UG, QD
     Route: 058

REACTIONS (15)
  - SHOULDER DEFORMITY [None]
  - UPPER LIMB FRACTURE [None]
  - HYPOAESTHESIA [None]
  - PAIN IN EXTREMITY [None]
  - SOMNOLENCE [None]
  - FALL [None]
  - HOSPITALISATION [None]
  - NAUSEA [None]
  - SWELLING [None]
  - LIGAMENT SPRAIN [None]
  - CYSTITIS [None]
  - HYPOKINESIA [None]
  - LIMB DISCOMFORT [None]
  - LOSS OF CONTROL OF LEGS [None]
  - DEPRESSION [None]
